FAERS Safety Report 7590302-2 (Version None)
Quarter: 2011Q3

REPORT INFORMATION
  Report Type: 
  Country: None (occurrence: None)
  Receive Date: 20110705
  Receipt Date: 20110629
  Transmission Date: 20111222
  Serious: Yes (Hospitalization)
  Sender: FDA-Public Use
  Company Number: GB-PFIZER INC-2011131998

PATIENT
  Age: 70 Year
  Sex: Male

DRUGS (2)
  1. SUNITINIB MALATE [Suspect]
     Dosage: 25 MG, UNK
     Dates: start: 20110330
  2. CIPROFLOXACIN [Concomitant]
     Dosage: 250 MG, 2X/DAY

REACTIONS (1)
  - UROSEPSIS [None]
